FAERS Safety Report 15344747 (Version 2)
Quarter: 2018Q3

REPORT INFORMATION
  Report Type: Spontaneous
  Country: DE (occurrence: DE)
  Receive Date: 20180903
  Receipt Date: 20180906
  Transmission Date: 20181010
  Serious: Yes (Other)
  Sender: FDA-Public Use
  Company Number: PHHY2018DE082587

PATIENT
  Age: 74 Year
  Sex: Female

DRUGS (1)
  1. GLIVEC [Suspect]
     Active Substance: IMATINIB MESYLATE
     Indication: GASTROINTESTINAL STROMAL TUMOUR
     Dosage: UNK
     Route: 065
     Dates: start: 201712

REACTIONS (7)
  - Hepatic steatosis [Unknown]
  - Hepatic enzyme increased [Unknown]
  - Angiofibroma [Unknown]
  - Tumour invasion [Unknown]
  - Hepatic lesion [Unknown]
  - Hypoperfusion [Unknown]
  - Portal fibrosis [Unknown]
